FAERS Safety Report 15664954 (Version 2)
Quarter: 2018Q4

REPORT INFORMATION
  Report Type: Spontaneous
  Country: US (occurrence: US)
  Receive Date: 20181128
  Receipt Date: 20181220
  Transmission Date: 20190205
  Serious: Yes (Other)
  Sender: FDA-Public Use
  Company Number: US-AKORN PHARMACEUTICALS-2018AKN01837

PATIENT
  Age: 23 Year
  Sex: Male
  Weight: 68.03 kg

DRUGS (2)
  1. MYORISAN [Suspect]
     Active Substance: ISOTRETINOIN
     Indication: ACNE
     Dosage: 30 MG, 1X/DAY (WITH 40 MG FOR TOTAL DOSE OF 70 MG PER DAY)
     Dates: start: 20180531, end: 20181020
  2. MYORISAN [Suspect]
     Active Substance: ISOTRETINOIN
     Indication: ACNE
     Dosage: 40 MG, 1X/DAY (WITH 30 MG FOR TOTAL DOSE OF 70 MG PER DAY)
     Dates: start: 20180531, end: 20181020

REACTIONS (2)
  - Mood swings [Recovered/Resolved]
  - Mood altered [Recovered/Resolved]

NARRATIVE: CASE EVENT DATE: 201810
